FAERS Safety Report 13903011 (Version 1)
Quarter: 2017Q3

REPORT INFORMATION
  Report Type: Spontaneous
  Country: US (occurrence: US)
  Receive Date: 20170824
  Receipt Date: 20170824
  Transmission Date: 20171127
  Serious: Yes (Other)
  Sender: FDA-Public Use
  Company Number: PHHY2017US124111

PATIENT
  Age: 6 Year
  Sex: Male

DRUGS (2)
  1. VORICONAZOLE. [Interacting]
     Active Substance: VORICONAZOLE
     Indication: PNEUMONIA
     Route: 065
  2. METHOTREXATE. [Suspect]
     Active Substance: METHOTREXATE
     Indication: ACUTE LYMPHOCYTIC LEUKAEMIA
     Dosage: DECREASED 25 %
     Route: 065

REACTIONS (6)
  - Photodermatosis [Recovering/Resolving]
  - Burns second degree [Recovering/Resolving]
  - Rash [Recovering/Resolving]
  - Erythema [Recovering/Resolving]
  - Sunburn [Recovering/Resolving]
  - Drug interaction [Unknown]
